FAERS Safety Report 5915400-8 (Version None)
Quarter: 2008Q4

REPORT INFORMATION
  Report Type: 
  Country: None (occurrence: None)
  Receive Date: 20081010
  Receipt Date: 20080929
  Transmission Date: 20090506
  Serious: Yes (Hospitalization)
  Sender: FDA-Public Use
  Company Number: FR-WYE-H06275408

PATIENT
  Sex: Female

DRUGS (4)
  1. CORDARONE [Suspect]
     Dosage: DOSE UNKNOWN
     Route: 065
  2. LASIX [Suspect]
     Dosage: DOSE UNKNOWN
     Route: 048
  3. RENAGEL [Suspect]
     Dosage: DOSE UNKNOWN
     Route: 065
  4. SPECIAFOLDINE [Suspect]
     Dosage: DOSE UNKNOWN
     Route: 065

REACTIONS (4)
  - EOSINOPHILIA [None]
  - PRURIGO [None]
  - RASH MACULO-PAPULAR [None]
  - TOXIC SKIN ERUPTION [None]
